FAERS Safety Report 5234927-8 (Version None)
Quarter: 2007Q1

REPORT INFORMATION
  Report Type: 
  Country: None (occurrence: None)
  Receive Date: 20070209
  Receipt Date: 20070129
  Transmission Date: 20070707
  Serious: Yes (Other)
  Sender: FDA-Public Use
  Company Number: FR-PFIZER INC-2007009190

PATIENT
  Age: 79 Year
  Sex: Male

DRUGS (2)
  1. LYRICA [Suspect]
     Indication: PAIN
  2. INSULIN ASPART [Concomitant]

REACTIONS (6)
  - DEPRESSED LEVEL OF CONSCIOUSNESS [None]
  - GAIT DISTURBANCE [None]
  - HYPOGLYCAEMIA [None]
  - MALAISE [None]
  - PAIN [None]
  - URINARY INCONTINENCE [None]
